FAERS Safety Report 9231769 (Version 1)
Quarter: 2013Q2

REPORT INFORMATION
  Report Type: Spontaneous
  Country: US (occurrence: US)
  Receive Date: 20130415
  Receipt Date: 20130415
  Transmission Date: 20140414
  Serious: No
  Sender: FDA-Public Use
  Company Number: US-PFIZER INC-2013117768

PATIENT
  Age: 55 Year
  Sex: Female
  Weight: 90.7 kg

DRUGS (4)
  1. ALPRAZOLAM [Suspect]
     Indication: PANIC ATTACK
     Dosage: 2 MG, 2X/DAY
     Route: 048
     Dates: start: 201212, end: 2013
  2. ALPRAZOLAM [Suspect]
     Dosage: 1 MG, 2X/DAY
     Route: 048
     Dates: start: 2013
  3. NEURONTIN [Concomitant]
     Indication: POSTOPERATIVE CARE
     Dosage: UNK
     Dates: start: 2012
  4. OXYCONTIN [Concomitant]
     Indication: BACK DISORDER
     Dosage: UNK

REACTIONS (3)
  - Drug intolerance [Unknown]
  - Somnolence [Unknown]
  - Blood iron decreased [Unknown]
